FAERS Safety Report 5738196-1 (Version None)
Quarter: 2008Q2

REPORT INFORMATION
  Report Type: 
  Country: None (occurrence: None)
  Receive Date: 20080514
  Receipt Date: 20080507
  Transmission Date: 20081010
  Serious: Yes (Disabling, Other)
  Sender: FDA-Public Use
  Company Number: IE-PFIZER INC-2008022773

PATIENT
  Sex: Male
  Weight: 92.1 kg

DRUGS (5)
  1. ISTIN [Suspect]
     Indication: HYPERTENSION
     Route: 048
  2. PLAVIX [Concomitant]
     Dosage: DAILY DOSE:75MG
  3. ATENOLOL [Concomitant]
     Route: 048
  4. ATACAND [Concomitant]
     Indication: CORONARY ARTERY DISEASE
     Dosage: DAILY DOSE:16MG
     Route: 048
  5. ZOCOR [Concomitant]
     Indication: BLOOD CHOLESTEROL INCREASED
     Dosage: DAILY DOSE:40MG
     Route: 048
     Dates: start: 20020101

REACTIONS (1)
  - GOUTY ARTHRITIS [None]
